FAERS Safety Report 8244748-X (Version None)
Quarter: 2012Q1

REPORT INFORMATION
  Report Type: 
  Country: None (occurrence: None)
  Receive Date: 20120329
  Receipt Date: 20110315
  Transmission Date: 20120608
  Serious: No
  Sender: FDA-Public Use
  Company Number: US-MYLANLABS-2011S1005628

PATIENT
  Age: 43 Year
  Sex: Female

DRUGS (1)
  1. FENTANYL-100 [Suspect]
     Indication: NEUROPATHY PERIPHERAL
     Dosage: CHANGED Q48H - Q72H.
     Route: 062
     Dates: start: 20110101

REACTIONS (5)
  - HEART RATE INCREASED [None]
  - THIRST [None]
  - ABDOMINAL PAIN UPPER [None]
  - BLADDER PAIN [None]
  - RENAL PAIN [None]
